FAERS Safety Report 7516197-0 (Version None)
Quarter: 2011Q2

REPORT INFORMATION
  Report Type: 
  Country: None (occurrence: None)
  Receive Date: 20110601
  Receipt Date: 20110526
  Transmission Date: 20111010
  Serious: Yes (Hospitalization, Other)
  Sender: FDA-Public Use
  Company Number: US-PFIZER INC-2011115532

PATIENT
  Age: 63 Year
  Sex: Male
  Weight: 108.84 kg

DRUGS (3)
  1. TYGACIL [Suspect]
     Indication: POST PROCEDURAL INFECTION
     Dosage: UNK
  2. VANCOMYCIN [Concomitant]
     Dosage: UNK
  3. POLYMYXIN [Suspect]

REACTIONS (3)
  - SKIN DISCOLOURATION [None]
  - NERVOUS SYSTEM DISORDER [None]
  - DIARRHOEA [None]
